FAERS Safety Report 24810419 (Version 1)
Quarter: 2025Q1

REPORT INFORMATION
  Report Type: Spontaneous
  Country: FR (occurrence: FR)
  Receive Date: 20250106
  Receipt Date: 20250106
  Transmission Date: 20250409
  Serious: Yes (Other)
  Sender: PFIZER
  Company Number: FR-Merck Healthcare KGaA-2024066564

PATIENT
  Age: 39 Year
  Sex: Female

DRUGS (2)
  1. SYNAREL [Suspect]
     Active Substance: NAFARELIN ACETATE
     Indication: In vitro fertilisation
     Dates: start: 202301
  2. FOLLITROPIN\LUTROPIN ALFA [Suspect]
     Active Substance: FOLLITROPIN\LUTROPIN ALFA
     Indication: In vitro fertilisation
     Dates: start: 202301

REACTIONS (1)
  - Biochemical pregnancy [Recovered/Resolved]
